FAERS Safety Report 7783660-7 (Version None)
Quarter: 2011Q3

REPORT INFORMATION
  Report Type: 
  Country: None (occurrence: None)
  Receive Date: 20110928
  Receipt Date: 20110921
  Transmission Date: 20111222
  Serious: Yes (Hospitalization)
  Sender: FDA-Public Use
  Company Number: US-B.I. PHARMACEUTICALS,INC./RIDGEFIELD-2011-BP-16314BP

PATIENT
  Sex: Female

DRUGS (10)
  1. FOSAMAX [Concomitant]
  2. SPIRIVA [Suspect]
     Indication: DYSPNOEA
     Dosage: 18 MCG
     Route: 055
     Dates: start: 20110601
  3. POTASSIUM [Concomitant]
     Dosage: 10 MG
  4. FUROSEMIDE [Concomitant]
     Dosage: 40 MG
  5. VITAMIN B-12 [Concomitant]
     Dosage: 500 MG
  6. OMEPRAZOLE [Concomitant]
     Dosage: 20 MG
  7. VIT D [Concomitant]
     Dosage: 2000 U
  8. ASPIRIN [Concomitant]
  9. ATENOLOL [Concomitant]
     Indication: HYPERTENSION
     Dosage: 50 MG
     Route: 048
  10. B6 [Concomitant]
     Dosage: 100 MG

REACTIONS (3)
  - DRY THROAT [None]
  - DYSPNOEA [None]
  - DYSPHONIA [None]
